APPROVED DRUG PRODUCT: VELSIPITY
Active Ingredient: ETRASIMOD ARGININE
Strength: EQ 2MG BASE
Dosage Form/Route: TABLET;ORAL
Application: N216956 | Product #001
Applicant: PFIZER INC
Approved: Oct 12, 2023 | RLD: Yes | RS: Yes | Type: RX

PATENTS:
Patent 11884626 | Expires: Jun 21, 2036
Patent 12377071 | Expires: Jan 6, 2036
Patent 11007175 | Expires: Jan 6, 2036
Patent 10676435 | Expires: Jun 21, 2036
Patent 9126932 | Expires: Jul 22, 2029
Patent 12156866 | Expires: Jan 6, 2036
Patent 11091435 | Expires: Jun 21, 2036
Patent 10301262 | Expires: Jun 21, 2036
Patent 8580841 | Expires: Mar 5, 2030

EXCLUSIVITY:
Code: NCE | Date: Oct 12, 2028